FAERS Safety Report 4368199-3 (Version None)
Quarter: 2004Q2

REPORT INFORMATION
  Report Type: 
  Country: None (occurrence: None)
  Receive Date: 20040527
  Receipt Date: 20040517
  Transmission Date: 20050107
  Serious: Yes (Hospitalization, Other)
  Sender: FDA-Public Use
  Company Number: HQWYE941617MAY04

PATIENT
  Age: 5 Year
  Sex: Male

DRUGS (1)
  1. GRISACTIN [Suspect]
     Indication: TINEA CAPITIS
     Dosage: 200 MG DAILY

REACTIONS (4)
  - HAEMOGLOBIN DECREASED [None]
  - MICROSPORUM INFECTION [None]
  - PAIN IN EXTREMITY [None]
  - SERUM SICKNESS [None]
